FAERS Safety Report 4788321-4 (Version None)
Quarter: 2005Q4

REPORT INFORMATION
  Report Type: 
  Country: None (occurrence: None)
  Receive Date: 20051003
  Receipt Date: 20050920
  Transmission Date: 20060501
  Serious: Yes (Disabling, Other)
  Sender: FDA-Public Use
  Company Number: 2005131025

PATIENT
  Age: 75 Year
  Sex: Female
  Weight: 68.0396 kg

DRUGS (3)
  1. LIPITOR [Suspect]
     Indication: BLOOD CHOLESTEROL INCREASED
     Dosage: 10 MG (10 MG, 1 IN 1 D)
     Dates: end: 20040901
  2. INDAPAMIDE (NDAPAMIDE) [Concomitant]
  3. METHYLDOPA [Concomitant]

REACTIONS (8)
  - BLOOD CHOLESTEROL INCREASED [None]
  - BURNING SENSATION [None]
  - FALL [None]
  - MUSCLE SPASMS [None]
  - MYALGIA [None]
  - NERVE INJURY [None]
  - PAIN IN EXTREMITY [None]
  - PERONEAL NERVE PALSY [None]
